FAERS Safety Report 5155753-4 (Version None)
Quarter: 2006Q4

REPORT INFORMATION
  Report Type: 
  Country: None (occurrence: None)
  Receive Date: 20061113
  Receipt Date: 20061103
  Transmission Date: 20070319
  Serious: Yes (Other)
  Sender: FDA-Public Use
  Company Number: 163-21880-06110316

PATIENT
  Age: 52 Year
  Sex: Male

DRUGS (4)
  1. REVLIMID [Suspect]
     Indication: MULTIPLE MYELOMA
     Dosage: 25 MG, DAILY, ORAL
     Route: 048
     Dates: start: 20060117, end: 20060915
  2. COUMADIN [Concomitant]
  3. PERCOCET [Concomitant]
  4. OXYCONTIN [Concomitant]

REACTIONS (1)
  - PHARYNGEAL NEOPLASM BENIGN [None]
